FAERS Safety Report 5933573-8 (Version None)
Quarter: 2008Q4

REPORT INFORMATION
  Report Type: 
  Country: None (occurrence: None)
  Receive Date: 20081024
  Receipt Date: 20081020
  Transmission Date: 20090506
  Serious: Yes (Other)
  Sender: FDA-Public Use
  Company Number: 2008S1017671

PATIENT
  Age: 46 Year
  Sex: Male

DRUGS (3)
  1. DEXAMETHASONE TAB [Suspect]
     Indication: CORNEAL EPITHELIUM DEFECT
     Dosage: OPTH
     Route: 047
  2. TIMOLOL MALEATE [Suspect]
     Indication: CORNEAL EPITHELIUM DEFECT
     Dosage: DAILY;OPTH
     Route: 047
  3. EXOCIN (OFLOXACIN) [Suspect]
     Indication: CORNEAL EPITHELIUM DEFECT
     Dosage: OPHTH, TWICE A DAY

REACTIONS (1)
  - CORNEAL DEPOSITS [None]
